FAERS Safety Report 23891074 (Version 3)
Quarter: 2024Q2

REPORT INFORMATION
  Report Type: Spontaneous
  Country: US (occurrence: US)
  Receive Date: 20240523
  Receipt Date: 20240527
  Transmission Date: 20240716
  Serious: Yes (Other)
  Sender: FDA-Public Use
  Company Number: US-CTI BIOPHARMA-2024US04492

PATIENT
  Age: 74 Year
  Sex: Male

DRUGS (2)
  1. VONJO [Suspect]
     Active Substance: PACRITINIB
     Indication: Myelofibrosis
     Dosage: 200 MG, BID
     Route: 048
     Dates: start: 20230629
  2. HYDREA [Suspect]
     Active Substance: HYDROXYUREA
     Indication: Product used for unknown indication
     Dosage: TWICE A DAY

REACTIONS (11)
  - Pneumonia [Unknown]
  - Neuropathy peripheral [Unknown]
  - Drug ineffective [Unknown]
  - Product dose omission issue [Unknown]
  - Fall [Unknown]
  - Nasal injury [Unknown]
  - Epistaxis [Unknown]
  - Chronic obstructive pulmonary disease [Unknown]
  - Haemoglobin decreased [Unknown]
  - Lung disorder [Unknown]
  - Haemorrhage [Unknown]

NARRATIVE: CASE EVENT DATE: 20240101
